FAERS Safety Report 6483921-8 (Version None)
Quarter: 2009Q4

REPORT INFORMATION
  Report Type: 
  Country: None (occurrence: None)
  Receive Date: 20091209
  Receipt Date: 20091202
  Transmission Date: 20100525
  Serious: Yes (Death, Hospitalization)
  Sender: FDA-Public Use
  Company Number: CM-MERCK-0912USA00373

PATIENT
  Age: 63 Year
  Sex: Female

DRUGS (1)
  1. STROMECTOL [Suspect]
     Indication: ONCHOCERCIASIS
     Route: 048
     Dates: start: 20091002, end: 20091002

REACTIONS (12)
  - ASTHENIA [None]
  - DEATH [None]
  - DIARRHOEA [None]
  - HAEMORRHAGIC ANAEMIA [None]
  - HEADACHE [None]
  - MELAENA [None]
  - MYALGIA [None]
  - PHYSICAL ASSAULT [None]
  - PYREXIA [None]
  - TRAUMATIC HAEMORRHAGE [None]
  - VERTIGO [None]
  - VOMITING [None]
